FAERS Safety Report 17922677 (Version 2)
Quarter: 2020Q2

REPORT INFORMATION
  Report Type: Report from Study
  Country: US (occurrence: US)
  Receive Date: 20200622
  Receipt Date: 20200625
  Transmission Date: 20200714
  Serious: No
  Sender: FDA-Public Use
  Company Number: US-ROCHE-2626636

PATIENT
  Sex: Male

DRUGS (1)
  1. OCREVUS [Suspect]
     Active Substance: OCRELIZUMAB
     Indication: RELAPSING MULTIPLE SCLEROSIS
     Dosage: DATE OF TREATMENT: 21/NOV/2017, 05/DEC/2017, 05/JUN/2018, 05/DEC/2018, 05/JUN/2019, 30/DEC/2019, 13/
     Route: 065
     Dates: start: 20171121

REACTIONS (1)
  - Influenza [Recovering/Resolving]
